FAERS Safety Report 9536726 (Version 1)
Quarter: 2013Q3

REPORT INFORMATION
  Report Type: Spontaneous
  Country: US (occurrence: None)
  Receive Date: 20130918
  Receipt Date: 20130918
  Transmission Date: 20140515
  Serious: Yes (Hospitalization)
  Sender: FDA-Public Use
  Company Number: None

PATIENT
  Age: 60 Year
  Sex: Male
  Weight: 141.4 kg

DRUGS (2)
  1. METOPROLOL [Suspect]
     Indication: HYPERTENSION
     Route: 048
     Dates: start: 20111025, end: 20130705
  2. OXYCODONE [Suspect]
     Route: 048
     Dates: start: 20130705

REACTIONS (3)
  - Bradycardia [None]
  - Syncope [None]
  - Anaemia [None]
